FAERS Safety Report 4816230-0 (Version None)
Quarter: 2005Q4

REPORT INFORMATION
  Report Type: 
  Country: None (occurrence: None)
  Receive Date: 20051026
  Receipt Date: 20051017
  Transmission Date: 20060501
  Serious: Yes (Hospitalization)
  Sender: FDA-Public Use
  Company Number: UKP05000344

PATIENT
  Age: 84 Year
  Sex: Female
  Weight: 64.2 kg

DRUGS (7)
  1. ACTONEL [Suspect]
     Indication: OSTEITIS DEFORMANS
     Dosage: 30 MG, 1/DAY, ORAL
     Route: 048
     Dates: start: 20041101, end: 20050901
  2. FUROSEMIDE [Concomitant]
  3. ASPIRIN [Concomitant]
  4. ALLOPURINOL [Concomitant]
  5. LETROZOLE (LETROZOLE) [Concomitant]
  6. METOPROLOL TARTRATE [Concomitant]
  7. SIMVASTATIN [Concomitant]

REACTIONS (1)
  - HYPERKALAEMIA [None]
